FAERS Safety Report 17112986 (Version 3)
Quarter: 2020Q1

REPORT INFORMATION
  Report Type: Spontaneous
  Country: NL (occurrence: NL)
  Receive Date: 20191204
  Receipt Date: 20200120
  Transmission Date: 20200409
  Serious: Yes (Death, Hospitalization, Other)
  Sender: FDA-Public Use
  Company Number: US-ALEXION PHARMACEUTICALS INC.-A201917645

PATIENT
  Age: 62 Year
  Sex: Female
  Weight: 59.8 kg

DRUGS (3)
  1. SOLIRIS [Suspect]
     Active Substance: ECULIZUMAB
     Indication: OFF LABEL USE
  2. CIPROFLOXACIN. [Concomitant]
     Active Substance: CIPROFLOXACIN
     Indication: ANTIBIOTIC PROPHYLAXIS
     Dosage: 750 MG, UNK
     Route: 065
     Dates: start: 20190412, end: 20190510
  3. SOLIRIS [Suspect]
     Active Substance: ECULIZUMAB
     Indication: SUBARACHNOID HAEMORRHAGE
     Dosage: 1200 MG, UNK
     Route: 042
     Dates: start: 20190412, end: 20190417

REACTIONS (6)
  - Meningitis candida [Recovered/Resolved]
  - Hydrocephalus [Not Recovered/Not Resolved]
  - Device related infection [Not Recovered/Not Resolved]
  - Off label use [Unknown]
  - Catheter site abscess [Unknown]
  - Intracranial aneurysm [Fatal]

NARRATIVE: CASE EVENT DATE: 20190412
